FAERS Safety Report 14908519 (Version 1)
Quarter: 2018Q2

REPORT INFORMATION
  Report Type: Spontaneous
  Country: US (occurrence: US)
  Receive Date: 20180430
  Receipt Date: 20180430
  Transmission Date: 20180711
  Serious: Yes (Death, Life-Threatening)
  Sender: FDA-Public Use
  Company Number: None

PATIENT
  Age: 71 Year
  Sex: Female
  Weight: 119 kg

DRUGS (14)
  1. NAPROXEN 500 MG PRN [Concomitant]
     Dates: start: 20180225
  2. RISPERIDONE 0.5 MG [Concomitant]
     Dates: start: 20140621
  3. WARFARIN 5 MG [Concomitant]
     Active Substance: WARFARIN
     Dates: start: 20140521
  4. DOCUSATE 100 MG [Concomitant]
     Dates: start: 20140319
  5. DONEPEZIL 10 MG [Concomitant]
     Active Substance: DONEPEZIL HYDROCHLORIDE
     Dates: start: 20140410
  6. LISINOPRIL-HYDROCHLOROTHIAZIDE 20 MG-12.5 MG [Concomitant]
     Dates: start: 20140319
  7. ELIQUIS [Suspect]
     Active Substance: APIXABAN
     Route: 048
     Dates: start: 20180227, end: 20180228
  8. ASPIRIN 81 MG [Concomitant]
     Active Substance: ASPIRIN
     Dates: start: 20140319
  9. AMLODIPINE 10 MG [Concomitant]
     Active Substance: AMLODIPINE BESYLATE
     Dates: start: 20140429
  10. GLIPIZIDE 5 MG [Concomitant]
     Dates: start: 20140613
  11. PAROXETINE. [Concomitant]
     Active Substance: PAROXETINE
     Dates: start: 20140621
  12. ROSUVASTATIN 20 MG [Concomitant]
     Dates: start: 20140621
  13. METOPROLOL 100 MG [Concomitant]
     Active Substance: METOPROLOL
     Dates: start: 20140516
  14. BUPROPRION 150 MG [Concomitant]
     Dates: start: 20140521

REACTIONS (4)
  - Fall [None]
  - Haematoma [None]
  - Hypertension [None]
  - Haemorrhage intracranial [None]

NARRATIVE: CASE EVENT DATE: 20180228
